FAERS Safety Report 4265987-9 (Version None)
Quarter: 2004Q1

REPORT INFORMATION
  Report Type: 
  Country: None (occurrence: None)
  Receive Date: 20040106
  Receipt Date: 20031224
  Transmission Date: 20041129
  Serious: Yes (Other)
  Sender: FDA-Public Use
  Company Number: 200323103GDDC

PATIENT
  Age: 46 Year
  Sex: Male
  Weight: 74 kg

DRUGS (2)
  1. METRONIDAZOLE [Suspect]
     Indication: TOOTH DISORDER
     Dosage: PO
     Route: 048
     Dates: start: 20031205
  2. CITALOPRAM [Suspect]
     Indication: ANXIETY
     Dosage: 10 MG PO
     Route: 048
     Dates: start: 20031209

REACTIONS (2)
  - DRUG INTERACTION [None]
  - SOMNOLENCE [None]
